FAERS Safety Report 15535565 (Version 1)
Quarter: 2018Q4

REPORT INFORMATION
  Report Type: Spontaneous
  Country: US (occurrence: US)
  Receive Date: 20181015
  Receipt Date: 20181015
  Transmission Date: 20190205
  Serious: Yes (Hospitalization)
  Sender: FDA-Public Use
  Company Number: None

PATIENT
  Sex: Female

DRUGS (1)
  1. BOSULIF [Suspect]
     Active Substance: BOSUTINIB MONOHYDRATE
     Indication: PRODUCT USED FOR UNKNOWN INDICATION
     Route: 048
     Dates: start: 20180824

REACTIONS (8)
  - Vomiting [None]
  - Rash [None]
  - Abdominal pain [None]
  - Diarrhoea [None]
  - Nausea [None]
  - Dyspnoea [None]
  - Bone pain [None]
  - Fatigue [None]
